FAERS Safety Report 5075973-7 (Version None)
Quarter: 2006Q3

REPORT INFORMATION
  Report Type: 
  Country: None (occurrence: None)
  Receive Date: 20060714
  Receipt Date: 20060505
  Transmission Date: 20061208
  Serious: No
  Sender: FDA-Public Use
  Company Number: 2006SP001976

PATIENT
  Age: 39 Year
  Sex: Male
  Weight: 102.0593 kg

DRUGS (5)
  1. LUNESTA [Suspect]
     Indication: INSOMNIA
     Dosage: 3 MG;1X;ORAL
     Route: 048
     Dates: start: 20060504, end: 20060504
  2. CLONAZEPAM [Concomitant]
  3. TEGRETOL [Concomitant]
  4. LISINOPRIL [Concomitant]
  5. PAXIL [Concomitant]

REACTIONS (6)
  - COUGH [None]
  - DIZZINESS [None]
  - DYSGEUSIA [None]
  - RETCHING [None]
  - THROAT IRRITATION [None]
  - VOMITING [None]
